FAERS Safety Report 16184356 (Version 1)
Quarter: 2019Q2

REPORT INFORMATION
  Report Type: Spontaneous
  Country: US (occurrence: US)
  Receive Date: 20190411
  Receipt Date: 20190411
  Transmission Date: 20190711
  Serious: Yes (Other)
  Sender: FDA-Public Use
  Company Number: US-ASTELLAS-2018US018119

PATIENT
  Sex: Male

DRUGS (4)
  1. TACROLIMUS. [Suspect]
     Active Substance: TACROLIMUS
     Dosage: 2 MG, TWICE DAILY (2 MG IN MORNING AND 2 MG IN AFTERNOON)
     Route: 048
     Dates: end: 20180405
  2. TACROLIMUS. [Suspect]
     Active Substance: TACROLIMUS
     Dosage: 1 MG, TWICE DAILY (1MG IN THE MORNING AND 1MG IN THE AFTERNOON)
     Route: 048
  3. TACROLIMUS. [Suspect]
     Active Substance: TACROLIMUS
     Indication: RENAL TRANSPLANT
     Dosage: 4 MG, TWICE DAILY (4 MG IN MORNING AND 4MG IN EVENING)
     Route: 048
     Dates: start: 20180121
  4. TACROLIMUS. [Suspect]
     Active Substance: TACROLIMUS
     Dosage: 2 MG IN MORNING AND 1 MG IN AFTERNOON, TWICE DAILY
     Route: 048

REACTIONS (3)
  - Alanine aminotransferase increased [Unknown]
  - Intentional dose omission [Unknown]
  - Aspartate aminotransferase increased [Unknown]
